FAERS Safety Report 8133914-X (Version None)
Quarter: 2012Q1

REPORT INFORMATION
  Report Type: 
  Country: None (occurrence: None)
  Receive Date: 20120213
  Receipt Date: 20120209
  Transmission Date: 20120608
  Serious: Yes (Death, Hospitalization, Disabling)
  Sender: FDA-Public Use
  Company Number: BR-ASTRAZENECA-2011SE40926

PATIENT
  Age: 56 Year
  Sex: Male
  Weight: 113 kg

DRUGS (2)
  1. ATACAND [Suspect]
     Indication: HYPERTENSION
     Route: 048
     Dates: start: 20110701
  2. ATACAND HCT [Suspect]
     Indication: HYPERTENSION
     Dosage: 16/12.5 DAILY
     Route: 048
     Dates: start: 20080101, end: 20110701

REACTIONS (8)
  - ASTHENIA [None]
  - URINARY INCONTINENCE [None]
  - PROSTATIC SPECIFIC ANTIGEN INCREASED [None]
  - PROSTATE CANCER [None]
  - VOMITING [None]
  - URINARY RETENTION [None]
  - METASTASES TO LUNG [None]
  - METASTASES TO BONE [None]
